FAERS Safety Report 6096782-6 (Version None)
Quarter: 2009Q1

REPORT INFORMATION
  Report Type: 
  Country: None (occurrence: None)
  Receive Date: 20090226
  Receipt Date: 20090226
  Transmission Date: 20090719
  Serious: Yes (Life-Threatening, Other)
  Sender: FDA-Public Use
  Company Number: None

PATIENT
  Sex: Female
  Weight: 33.5662 kg

DRUGS (1)
  1. MERCAPTOPURINE [Suspect]
     Indication: COLITIS ULCERATIVE
     Dosage: 75MG DAILY PO
     Route: 048

REACTIONS (5)
  - DIARRHOEA [None]
  - DRUG INEFFECTIVE [None]
  - MUSCLE SPASMS [None]
  - PRODUCT QUALITY ISSUE [None]
  - WEIGHT DECREASED [None]
